FAERS Safety Report 11105559 (Version 4)
Quarter: 2015Q2

REPORT INFORMATION
  Report Type: Report from Study
  Country: JP (occurrence: JP)
  Receive Date: 20150512
  Receipt Date: 20150626
  Transmission Date: 20150821
  Serious: Yes (Hospitalization)
  Sender: FDA-Public Use
  Company Number: JP-ROCHE-1576553

PATIENT
  Age: 43 Year
  Sex: Male
  Weight: 79.7 kg

DRUGS (2)
  1. RANIBIZUMAB [Suspect]
     Active Substance: RANIBIZUMAB
     Dosage: SECOND INJECTION
     Route: 031
     Dates: start: 20141105
  2. RANIBIZUMAB [Suspect]
     Active Substance: RANIBIZUMAB
     Indication: DIABETIC RETINAL OEDEMA
     Dosage: LEFT EYE
     Route: 050
     Dates: start: 20141008

REACTIONS (1)
  - Pneumonia [Recovered/Resolved]

NARRATIVE: CASE EVENT DATE: 20141227
